FAERS Safety Report 7929060-8 (Version None)
Quarter: 2011Q4

REPORT INFORMATION
  Report Type: 
  Country: None (occurrence: None)
  Receive Date: 20111119
  Receipt Date: 20111109
  Transmission Date: 20120403
  Serious: Yes (Disabling)
  Sender: FDA-Public Use
  Company Number: US-ASTRAZENECA-2011SE67782

PATIENT
  Age: 56 Year
  Sex: Male
  Weight: 117 kg

DRUGS (9)
  1. NEXIUM [Suspect]
     Indication: GASTROOESOPHAGEAL REFLUX DISEASE
     Route: 048
     Dates: start: 20021001
  2. LAMICTAL [Concomitant]
     Indication: POST-TRAUMATIC STRESS DISORDER
     Dosage: 3000 MG
     Dates: start: 20030101
  3. WELLBUTRIN [Concomitant]
     Indication: POST-TRAUMATIC STRESS DISORDER
     Dosage: 300 MG
     Dates: start: 20030101
  4. QUINTOPRIL [Concomitant]
     Indication: HYPERTENSION
     Dosage: 40 MG
     Dates: start: 19990101
  5. OVER THE COUNTER STOOL SOFTENER [Concomitant]
  6. FENTANYL-100 [Concomitant]
     Dosage: 50 MCG/HR
     Route: 062
  7. IBUPROFEN [Concomitant]
     Indication: PAIN
  8. FENTANYL-100 [Concomitant]
     Indication: PAIN
     Dosage: 25 MCG/HR
     Route: 062
     Dates: start: 20030801
  9. FENTANYL-100 [Concomitant]
     Dosage: 100 MCG/HR
     Route: 062

REACTIONS (1)
  - POST-TRAUMATIC STRESS DISORDER [None]
